FAERS Safety Report 5903670-1 (Version None)
Quarter: 2008Q3

REPORT INFORMATION
  Report Type: 
  Country: None (occurrence: None)
  Receive Date: 20080930
  Receipt Date: 20080918
  Transmission Date: 20090109
  Serious: Yes (Other)
  Sender: FDA-Public Use
  Company Number: FR-PFIZER INC-2008079790

PATIENT
  Age: 30 Year
  Sex: Male

DRUGS (2)
  1. NEURONTIN [Suspect]
     Indication: EPILEPSY
  2. OXCARBAZEPINE [Concomitant]

REACTIONS (2)
  - DRY MOUTH [None]
  - ENAMEL ANOMALY [None]
